FAERS Safety Report 6781350-0 (Version None)
Quarter: 2010Q2

REPORT INFORMATION
  Report Type: 
  Country: None (occurrence: None)
  Receive Date: 20100621
  Receipt Date: 20100618
  Transmission Date: 20101027
  Serious: Yes (Death, Hospitalization)
  Sender: FDA-Public Use
  Company Number: PHHY2010TW17502

PATIENT
  Sex: Female

DRUGS (1)
  1. EXJADE [Suspect]
     Dosage: 14 TABLETS
     Route: 048

REACTIONS (4)
  - DEATH [None]
  - ENDOTRACHEAL INTUBATION [None]
  - HYDRONEPHROSIS [None]
  - PLEURAL EFFUSION [None]
